FAERS Safety Report 22089179 (Version 2)
Quarter: 2023Q2

REPORT INFORMATION
  Report Type: Report from Study
  Country: US (occurrence: US)
  Receive Date: 20230313
  Receipt Date: 20230621
  Transmission Date: 20230722
  Serious: Yes (Hospitalization, Other)
  Sender: FDA-Public Use
  Company Number: US-ABBVIE-22K-163-4421538-00

PATIENT
  Sex: Female

DRUGS (3)
  1. IBRUTINIB [Suspect]
     Active Substance: IBRUTINIB
     Indication: Chronic lymphocytic leukaemia
     Route: 048
     Dates: start: 20181022
  2. IBRUTINIB [Suspect]
     Active Substance: IBRUTINIB
     Indication: Chronic lymphocytic leukaemia
     Route: 048
  3. BIOTIN [Concomitant]
     Active Substance: BIOTIN
     Indication: Product used for unknown indication

REACTIONS (10)
  - Blood iron decreased [Unknown]
  - Sepsis [Unknown]
  - Injury [Unknown]
  - Skin cancer [Unknown]
  - Vitamin B12 decreased [Unknown]
  - Epistaxis [Unknown]
  - Urinary tract infection [Unknown]
  - Blood test abnormal [Unknown]
  - Alopecia [Unknown]
  - Gait inability [Unknown]
